FAERS Safety Report 5755169-3 (Version None)
Quarter: 2008Q2

REPORT INFORMATION
  Report Type: 
  Country: None (occurrence: None)
  Receive Date: 20080528
  Receipt Date: 20080516
  Transmission Date: 20081010
  Serious: Yes (Hospitalization)
  Sender: FDA-Public Use
  Company Number: 163-21880-08020115

PATIENT
  Age: 65 Year
  Sex: Female

DRUGS (5)
  1. REVLIMID [Suspect]
     Indication: MULTIPLE MYELOMA
     Dosage: 5 MG, DAILY X 21 DAYS, 1 WK REST Q28 DAYS, ORAL, 10 MG, 1 IN 1 D, ORAL
     Route: 048
     Dates: start: 20080118, end: 20080129
  2. REVLIMID [Suspect]
     Indication: MULTIPLE MYELOMA
     Dosage: 5 MG, DAILY X 21 DAYS, 1 WK REST Q28 DAYS, ORAL, 10 MG, 1 IN 1 D, ORAL
     Route: 048
     Dates: start: 20080219
  3. DEXAMETHASONE TAB [Suspect]
     Indication: DRUG USE FOR UNKNOWN INDICATION
     Dosage: 10 MG, WEEKLY, 20 MG, WEEKLY
     Dates: start: 20080118, end: 20080129
  4. DEXAMETHASONE TAB [Suspect]
     Indication: DRUG USE FOR UNKNOWN INDICATION
     Dosage: 10 MG, WEEKLY, 20 MG, WEEKLY
     Dates: start: 20080219
  5. PROZAC [Suspect]
     Indication: DRUG USE FOR UNKNOWN INDICATION
     Dosage: 10 MG, 20 MG

REACTIONS (7)
  - BLOOD PRESSURE INCREASED [None]
  - DIZZINESS [None]
  - FATIGUE [None]
  - GAIT DISTURBANCE [None]
  - PRURITUS [None]
  - RESTLESSNESS [None]
  - TREMOR [None]
